FAERS Safety Report 8413024-4 (Version None)
Quarter: 2012Q2

REPORT INFORMATION
  Report Type: 
  Country: None (occurrence: None)
  Receive Date: 20120605
  Receipt Date: 20120530
  Transmission Date: 20120825
  Serious: Yes (Other)
  Sender: FDA-Public Use
  Company Number: US-CELGENEUS-163-21880-12053684

PATIENT
  Sex: Female

DRUGS (13)
  1. CALCIUM [Concomitant]
     Route: 065
  2. METOPROLOL TARTRATE [Concomitant]
     Route: 065
  3. REVLIMID [Suspect]
     Indication: MULTIPLE MYELOMA
     Dosage: 15 MILLIGRAM
     Route: 048
     Dates: start: 20090212
  4. FLONASE [Concomitant]
     Route: 065
  5. NORCO [Concomitant]
     Route: 065
  6. VITAMIN D [Concomitant]
     Route: 065
  7. COLESTIPOL HYDROCHLORIDE [Concomitant]
     Route: 065
  8. OMEPRAZOLE [Concomitant]
     Route: 065
  9. ZOMETA [Concomitant]
     Route: 065
  10. LEVOTHROID [Concomitant]
     Route: 065
  11. VITAMIN K TAB [Concomitant]
     Route: 065
  12. CLARITIN [Concomitant]
     Route: 065
  13. LISINOPRIL [Concomitant]
     Route: 065

REACTIONS (2)
  - ULCER [None]
  - HEPATIC STEATOSIS [None]
